FAERS Safety Report 6644080-1 (Version None)
Quarter: 2010Q1

REPORT INFORMATION
  Report Type: 
  Country: None (occurrence: None)
  Receive Date: 20100322
  Receipt Date: 20050316
  Transmission Date: 20100710
  Serious: Yes (Hospitalization, Other)
  Sender: FDA-Public Use
  Company Number: JP-PFIZER INC-2005046940

PATIENT
  Age: 64 Year
  Sex: Female
  Weight: 55 kg

DRUGS (5)
  1. CORTRIL [Suspect]
     Indication: ILL-DEFINED DISORDER
     Route: 048
  2. IMIDAPRIL HYDROCHLORIDE [Concomitant]
     Route: 065
  3. ATENOLOL [Concomitant]
     Route: 065
  4. LEVOTHYROXINE SODIUM [Concomitant]
     Route: 065
  5. ZONISAMIDE [Concomitant]
     Route: 065

REACTIONS (2)
  - LUNG ADENOCARCINOMA [None]
  - PULMONARY EMBOLISM [None]
